FAERS Safety Report 7586766-0 (Version None)
Quarter: 2011Q2

REPORT INFORMATION
  Report Type: 
  Country: None (occurrence: None)
  Receive Date: 20110627
  Receipt Date: 20110621
  Transmission Date: 20111010
  Serious: Yes (Other)
  Sender: FDA-Public Use
  Company Number: 2011SP029002

PATIENT
  Age: 67 Year
  Sex: Female

DRUGS (4)
  1. IPRATROPIUM BROMIDE [Concomitant]
  2. DULERA TABLET [Suspect]
     Indication: ASTHMA
     Dosage: BID;INH
     Route: 055
     Dates: start: 20110428, end: 20110501
  3. XOPENEX [Concomitant]
  4. SINGULAIR [Concomitant]

REACTIONS (4)
  - CONDITION AGGRAVATED [None]
  - APHASIA [None]
  - DYSPHONIA [None]
  - ASTHMA [None]
